FAERS Safety Report 23096325 (Version 1)
Quarter: 2023Q4

REPORT INFORMATION
  Report Type: Spontaneous
  Country: US (occurrence: None)
  Receive Date: 20231021
  Receipt Date: 20231021
  Transmission Date: 20240110
  Serious: Yes (Hospitalization, Disabling, Other)
  Sender: FDA-Public Use
  Company Number: None

PATIENT
  Age: 62 Year
  Sex: Male
  Weight: 105.75 kg

DRUGS (12)
  1. TRAMADOL HCL [Suspect]
     Active Substance: TRAMADOL HYDROCHLORIDE
     Indication: Arthralgia
     Dosage: OTHER QUANTITY : 1 TABLET(S);?FREQUENCY : 3 TIMES A DAY;?
     Route: 048
     Dates: start: 20231017, end: 20231019
  2. C-PAP sleep machine [Concomitant]
  3. Foley Catheter [Concomitant]
  4. ATORVASTATIN [Concomitant]
     Active Substance: ATORVASTATIN
  5. MELOXICAM [Concomitant]
     Active Substance: MELOXICAM
  6. LISINOPRIL [Concomitant]
     Active Substance: LISINOPRIL
  7. HYDROCHLOROTHIAZIDE [Concomitant]
     Active Substance: HYDROCHLOROTHIAZIDE
  8. LEVOTHYROXINE [Concomitant]
     Active Substance: LEVOTHYROXINE
  9. One a day men^s 50+ multi vitamin [Concomitant]
  10. Cognitive health supplement [Concomitant]
  11. VITAMIN C [Concomitant]
     Active Substance: ASCORBIC ACID
  12. Osteo bi flex joint supplment [Concomitant]

REACTIONS (3)
  - Constipation [None]
  - Abdominal pain [None]
  - Urinary retention [None]

NARRATIVE: CASE EVENT DATE: 20231019
